FAERS Safety Report 7422637-8 (Version None)
Quarter: 2011Q2

REPORT INFORMATION
  Report Type: 
  Country: None (occurrence: None)
  Receive Date: 20110419
  Receipt Date: 20110412
  Transmission Date: 20111010
  Serious: Yes (Other)
  Sender: FDA-Public Use
  Company Number: US-AMGEN-USASP2011019538

PATIENT
  Sex: Female

DRUGS (2)
  1. CHEMOTHERAPEUTICS NOS [Concomitant]
  2. NEULASTA [Suspect]
     Indication: CHEMOTHERAPY
     Dates: start: 20030101, end: 20090101

REACTIONS (2)
  - WHITE BLOOD CELL COUNT DECREASED [None]
  - BREAST CANCER METASTATIC [None]
